FAERS Safety Report 24268762 (Version 1)
Quarter: 2024Q3

REPORT INFORMATION
  Report Type: Spontaneous
  Country: FR (occurrence: FR)
  Receive Date: 20240830
  Receipt Date: 20240830
  Transmission Date: 20241017
  Serious: Yes (Hospitalization)
  Sender: PFIZER
  Company Number: None

PATIENT
  Age: 83 Year
  Sex: Male

DRUGS (4)
  1. PIPERACILLIN SODIUM\TAZOBACTAM SODIUM [Suspect]
     Active Substance: PIPERACILLIN SODIUM\TAZOBACTAM SODIUM
     Indication: Liver abscess
     Dosage: UNK
     Route: 042
     Dates: start: 20240719, end: 20240722
  2. COLCHICINE [Suspect]
     Active Substance: COLCHICINE
     Indication: Gout
     Dosage: UNK
     Route: 048
     Dates: start: 20240716, end: 20240720
  3. FERROUS SULFATE [Suspect]
     Active Substance: FERROUS SULFATE
     Indication: Iron deficiency
     Dosage: UNK
     Route: 048
     Dates: start: 20240711, end: 20240720
  4. LOVENOX [Suspect]
     Active Substance: ENOXAPARIN SODIUM
     Indication: Thrombosis prophylaxis
     Dosage: 4000 IU, 1X/DAY
     Route: 058
     Dates: start: 20240711, end: 20240730

REACTIONS (2)
  - Cholestasis [Not Recovered/Not Resolved]
  - Off label use [Unknown]

NARRATIVE: CASE EVENT DATE: 20240719
